FAERS Safety Report 10100618 (Version 1)
Quarter: 2014Q2

REPORT INFORMATION
  Report Type: Spontaneous
  Country: US (occurrence: US)
  Receive Date: 20140423
  Receipt Date: 20140423
  Transmission Date: 20141212
  Serious: Yes (Other)
  Sender: FDA-Public Use
  Company Number: US-BAXTER-2014BAX019451

PATIENT
  Age: 7 Year
  Sex: Female

DRUGS (6)
  1. CEFTRIAXONE INJECTION, USP (IN DEXTROSE) [Suspect]
     Indication: CELLULITIS
     Route: 042
  2. TMP-SMX [Suspect]
     Indication: CELLULITIS
     Route: 048
  3. CLINDAMYCIN [Concomitant]
     Indication: CELLULITIS
     Route: 065
  4. VANCOMYCIN [Concomitant]
     Indication: CELLULITIS
     Route: 042
  5. GENTAMICIN [Concomitant]
     Indication: CELLULITIS
     Route: 061
  6. GENTAMICIN [Concomitant]
     Route: 042

REACTIONS (1)
  - Urticaria [Recovering/Resolving]
